FAERS Safety Report 13185388 (Version 1)
Quarter: 2017Q1

REPORT INFORMATION
  Report Type: Spontaneous
  Country: MX (occurrence: MX)
  Receive Date: 20170203
  Receipt Date: 20170203
  Transmission Date: 20170428
  Serious: Yes (Hospitalization)
  Sender: FDA-Public Use
  Company Number: MX-US WORLDMEDS, LLC-USW201702-000178

PATIENT
  Sex: Female

DRUGS (3)
  1. ZELNORM [Suspect]
     Active Substance: TEGASEROD MALEATE
     Indication: COLITIS
     Dates: start: 2007, end: 201612
  2. CALTRATE [Concomitant]
     Active Substance: CALCIUM CARBONATE
  3. FOSAMAX [Concomitant]
     Active Substance: ALENDRONATE SODIUM

REACTIONS (12)
  - Dyspnoea [Unknown]
  - Osteoporosis [Unknown]
  - Hypertension [Unknown]
  - Blood cholesterol abnormal [Unknown]
  - Insomnia [Unknown]
  - Ulcer [Unknown]
  - Pain in extremity [Unknown]
  - Product use issue [Unknown]
  - Asthma [Unknown]
  - Back pain [Unknown]
  - Infrequent bowel movements [Unknown]
  - General physical health deterioration [Unknown]
